FAERS Safety Report 5931147-6 (Version None)
Quarter: 2008Q4

REPORT INFORMATION
  Report Type: 
  Country: None (occurrence: None)
  Receive Date: 20081027
  Receipt Date: 20081017
  Transmission Date: 20090506
  Serious: Yes (Other)
  Sender: FDA-Public Use
  Company Number: PHHY2008DE17491

PATIENT
  Sex: Female
  Weight: 68 kg

DRUGS (2)
  1. FEMARA [Suspect]
     Indication: BREAST CANCER
     Dosage: 2.5 MG, QD
     Route: 048
     Dates: start: 20080410
  2. FEMARA [Suspect]
     Dosage: UNK

REACTIONS (1)
  - ERYTHEMA NODOSUM [None]
